FAERS Safety Report 17348326 (Version 1)
Quarter: 2020Q1

REPORT INFORMATION
  Report Type: Spontaneous
  Country: US (occurrence: US)
  Receive Date: 20200129
  Receipt Date: 20200129
  Transmission Date: 20200409
  Serious: Yes (Hospitalization)
  Sender: FDA-Public Use
  Company Number: None

PATIENT
  Sex: Female

DRUGS (19)
  1. STELARA [Suspect]
     Active Substance: USTEKINUMAB
     Indication: CROHN^S DISEASE
     Dosage: ?          OTHER FREQUENCY:Q 8 WEEKS;?
     Route: 058
  2. LIDOCAINE. [Concomitant]
     Active Substance: LIDOCAINE
  3. ARIPIPRAZOLE. [Concomitant]
     Active Substance: ARIPIPRAZOLE
  4. DICYCLOMINE [Concomitant]
     Active Substance: DICYCLOMINE HYDROCHLORIDE
  5. ESCITALOPRAM [Concomitant]
     Active Substance: ESCITALOPRAM OXALATE
  6. LEVETIRACETA [Concomitant]
  7. OXYBUTYNIN. [Concomitant]
     Active Substance: OXYBUTYNIN CHLORIDE
  8. BUSPIRONE [Concomitant]
     Active Substance: BUSPIRONE HYDROCHLORIDE
  9. MELOXICAM. [Concomitant]
     Active Substance: MELOXICAM
  10. ONDANSETRON [Concomitant]
     Active Substance: ONDANSETRON
  11. OXYCODONE AND ACETAMINOPHEN [Concomitant]
     Active Substance: ACETAMINOPHEN\OXYCODONE HYDROCHLORIDE
  12. FUROSEMIDE. [Concomitant]
     Active Substance: FUROSEMIDE
  13. ALPRAZOLAM. [Concomitant]
     Active Substance: ALPRAZOLAM
  14. LISINOPRIL. [Concomitant]
     Active Substance: LISINOPRIL
  15. PANTOPRAZOLE [Concomitant]
     Active Substance: PANTOPRAZOLE
  16. TRAZODONE [Concomitant]
     Active Substance: TRAZODONE HYDROCHLORIDE
  17. POT CL [Concomitant]
  18. BENZONATATE. [Concomitant]
     Active Substance: BENZONATATE
  19. SYMBICORT [Concomitant]
     Active Substance: BUDESONIDE\FORMOTEROL FUMARATE DIHYDRATE

REACTIONS (1)
  - Malaise [None]
